FAERS Safety Report 12970072 (Version 1)
Quarter: 2016Q4

REPORT INFORMATION
  Report Type: Report from Study
  Country: CA (occurrence: CA)
  Receive Date: 20161123
  Receipt Date: 20161123
  Transmission Date: 20170207
  Serious: Yes (Life-Threatening, Hospitalization)
  Sender: FDA-Public Use
  Company Number: CA-JNJFOC-20150115572

PATIENT
  Age: 42 Year
  Sex: Male
  Weight: 95.26 kg

DRUGS (2)
  1. REMICADE [Suspect]
     Active Substance: INFLIXIMAB
     Indication: ANKYLOSING SPONDYLITIS
     Route: 042
     Dates: start: 20111129, end: 20150122
  2. REMICADE [Suspect]
     Active Substance: INFLIXIMAB
     Indication: CROHN^S DISEASE
     Route: 042
     Dates: start: 20111129, end: 20150122

REACTIONS (2)
  - Drug level increased [Unknown]
  - Hospitalisation [Unknown]

NARRATIVE: CASE EVENT DATE: 20141219
